FAERS Safety Report 21563463 (Version 1)
Quarter: 2022Q4

REPORT INFORMATION
  Report Type: Report from Study
  Country: DE (occurrence: DE)
  Receive Date: 20221108
  Receipt Date: 20221108
  Transmission Date: 20230113
  Serious: Yes (Other)
  Sender: FDA-Public Use
  Company Number: DE-SUN PHARMACEUTICAL INDUSTRIES LTD-2022RR-355870

PATIENT
  Age: 80 Year
  Sex: Male

DRUGS (8)
  1. SONIDEGIB [Suspect]
     Active Substance: SONIDEGIB
     Indication: Basal cell carcinoma
     Dosage: 200 MILLIGRAM, DAILY
     Route: 048
     Dates: start: 20220201
  2. METOPROLOL [Concomitant]
     Active Substance: METOPROLOL
     Indication: Pre-existing disease
     Dosage: UNK, DAILY
     Route: 048
  3. VALSARTAN [Concomitant]
     Active Substance: VALSARTAN
     Indication: Pre-existing disease
     Dosage: UNK, DAILY
     Route: 048
  4. Lecarnidipin [Concomitant]
     Indication: Pre-existing disease
     Dosage: 20 MILLIGRAM, UNK
     Route: 048
  5. MARCUMAR [Concomitant]
     Active Substance: PHENPROCOUMON
     Indication: Pre-existing disease
     Dosage: 3 MILLIGRAM, UNK
     Route: 048
  6. SODIUM BICARBONATE [Concomitant]
     Active Substance: SODIUM BICARBONATE
     Indication: Prophylaxis
     Dosage: UNK, TID
     Route: 048
  7. MICTONORM UNO [Concomitant]
     Indication: Pre-existing disease
     Dosage: 30 MILLIGRAM, DAILY
     Route: 048
  8. Symbicort/Turbohaler Inhalation [Concomitant]
     Indication: Pre-existing disease
     Dosage: UNK, 1 APPLICATION

REACTIONS (5)
  - Blood creatine phosphokinase increased [Recovered/Resolved]
  - Myalgia [Unknown]
  - Muscle spasms [Unknown]
  - Fatigue [Unknown]
  - Arthralgia [Unknown]

NARRATIVE: CASE EVENT DATE: 20220323
